FAERS Safety Report 7724819-4 (Version None)
Quarter: 2011Q3

REPORT INFORMATION
  Report Type: 
  Country: None (occurrence: None)
  Receive Date: 20110901
  Receipt Date: 20110826
  Transmission Date: 20111222
  Serious: Yes (Hospitalization, Other)
  Sender: FDA-Public Use
  Company Number: US-ABBOTT-11P-163-0849907-00

PATIENT
  Sex: Female
  Weight: 63.56 kg

DRUGS (5)
  1. HUMIRA [Suspect]
     Indication: CROHN'S DISEASE
     Route: 058
     Dates: start: 20080101, end: 20100401
  2. HUMIRA [Suspect]
     Route: 058
     Dates: start: 20110801
  3. PENTASA [Concomitant]
     Indication: CROHN'S DISEASE
  4. HUMIRA [Suspect]
     Route: 058
     Dates: start: 20100901, end: 20110602
  5. NEXIUM [Concomitant]
     Indication: GASTROOESOPHAGEAL REFLUX DISEASE

REACTIONS (10)
  - OROPHARYNGEAL PAIN [None]
  - NAUSEA [None]
  - PYREXIA [None]
  - SUTURE RELATED COMPLICATION [None]
  - HERNIA [None]
  - UMBILICAL HERNIA [None]
  - STAPHYLOCOCCAL INFECTION [None]
  - NASOPHARYNGITIS [None]
  - INFLUENZA LIKE ILLNESS [None]
  - INCISION SITE PAIN [None]
